FAERS Safety Report 4280601-4 (Version None)
Quarter: 2004Q1

REPORT INFORMATION
  Report Type: 
  Country: None (occurrence: None)
  Receive Date: 20040127
  Receipt Date: 20040116
  Transmission Date: 20041129
  Serious: Yes (Hospitalization, Other)
  Sender: FDA-Public Use
  Company Number: 2003119646

PATIENT
  Age: 53 Year
  Sex: Female

DRUGS (2)
  1. DILANTIN [Suspect]
     Indication: ILL-DEFINED DISORDER
  2. CLOZAPINE [Suspect]
     Indication: ILL-DEFINED DISORDER
     Dosage: 725 MG BID ORAL
     Route: 048
     Dates: start: 19980801

REACTIONS (2)
  - CONVULSION [None]
  - PSYCHOTIC DISORDER [None]
